FAERS Safety Report 4962621-7 (Version None)
Quarter: 2006Q1

REPORT INFORMATION
  Report Type: 
  Country: None (occurrence: None)
  Receive Date: 20060201
  Receipt Date: 20051108
  Transmission Date: 20060701
  Serious: No
  Sender: FDA-Public Use
  Company Number: 2005PV004084

PATIENT
  Age: 74 Year
  Sex: Female
  Weight: 75.2971 kg

DRUGS (8)
  1. BYETTA [Suspect]
     Indication: DIABETES MELLITUS NON-INSULIN-DEPENDENT
     Dosage: 5 MCG;BID;SC
     Route: 058
     Dates: start: 20051103
  2. ACTOS [Concomitant]
  3. INDAPAMIDE [Concomitant]
  4. DIGITEK [Concomitant]
  5. COUMADIN ^BOOT^ [Concomitant]
  6. COZAAR [Concomitant]
  7. ATENOLOL [Concomitant]
  8. TAPAZOLE [Concomitant]

REACTIONS (3)
  - ARRHYTHMIA [None]
  - HEART RATE INCREASED [None]
  - HYPOGLYCAEMIA [None]
